FAERS Safety Report 24272802 (Version 1)
Quarter: 2024Q3

REPORT INFORMATION
  Report Type: Spontaneous
  Country: CA (occurrence: CA)
  Receive Date: 20240902
  Receipt Date: 20240902
  Transmission Date: 20241016
  Serious: Yes (Hospitalization)
  Sender: GILEAD
  Company Number: CA-GILEAD-2024-0685886

PATIENT
  Age: 68 Year
  Sex: Female
  Weight: 44 kg

DRUGS (3)
  1. EPCLUSA [Suspect]
     Active Substance: SOFOSBUVIR\VELPATASVIR
     Indication: Hepatitis C
     Dosage: 1 DOSAGE FORM, QD
     Route: 048
  2. BASAGLAR [Concomitant]
     Active Substance: INSULIN GLARGINE
     Route: 058
  3. OSELTAMIVIR [Concomitant]
     Active Substance: OSELTAMIVIR

REACTIONS (2)
  - Fall [Recovered/Resolved]
  - Hypoglycaemia [Recovered/Resolved]
